FAERS Safety Report 5619577-3 (Version None)
Quarter: 2008Q1

REPORT INFORMATION
  Report Type: 
  Country: None (occurrence: None)
  Receive Date: 20080205
  Receipt Date: 20080205
  Transmission Date: 20080703
  Serious: Yes (Life-Threatening)
  Sender: FDA-Public Use
  Company Number: None

PATIENT
  Sex: Female
  Weight: 63.5036 kg

DRUGS (1)
  1. CHANTIX [Suspect]
     Dates: start: 20070915, end: 20071114

REACTIONS (5)
  - ABNORMAL BEHAVIOUR [None]
  - MOOD SWINGS [None]
  - NIGHTMARE [None]
  - PHYSICAL ASSAULT [None]
  - SOMNAMBULISM [None]
